FAERS Safety Report 15956444 (Version 2)
Quarter: 2019Q1

REPORT INFORMATION
  Report Type: Report from Study
  Country: US (occurrence: US)
  Receive Date: 20190213
  Receipt Date: 20190325
  Transmission Date: 20190417
  Serious: Yes (Hospitalization, Other)
  Sender: FDA-Public Use
  Company Number: US-SA-2019SA036389

PATIENT
  Age: 56 Year
  Sex: Female

DRUGS (1)
  1. INSULIN GLARGINE [Suspect]
     Active Substance: INSULIN GLARGINE
     Indication: TYPE 2 DIABETES MELLITUS
     Dosage: 76 U, QD
     Route: 058

REACTIONS (9)
  - Gait disturbance [Recovered/Resolved]
  - Hospitalisation [Unknown]
  - Chest discomfort [Recovered/Resolved]
  - Blood iron decreased [Unknown]
  - Fall [Unknown]
  - Blood glucose decreased [Unknown]
  - Decreased appetite [Unknown]
  - Intentional dose omission [Unknown]
  - Intentional product misuse [Unknown]

NARRATIVE: CASE EVENT DATE: 201811
